FAERS Safety Report 9387558 (Version 2)
Quarter: 2013Q3

REPORT INFORMATION
  Report Type: Spontaneous
  Country: FR (occurrence: FR)
  Receive Date: 20130708
  Receipt Date: 20130712
  Transmission Date: 20140515
  Serious: Yes (Death)
  Sender: FDA-Public Use
  Company Number: FR-PFIZER INC-2013199962

PATIENT
  Age: 81 Year
  Sex: Male

DRUGS (14)
  1. EUPANTOL [Suspect]
     Dosage: UNK
     Route: 048
     Dates: start: 20130525
  2. VANCOMYCIN HCL [Suspect]
     Indication: ENDOCARDITIS
     Dosage: UNK
     Route: 042
     Dates: start: 20130530, end: 20130605
  3. GENTAMICIN [Suspect]
     Indication: ENDOCARDITIS
     Dosage: UNK
     Route: 042
     Dates: start: 20130530, end: 20130605
  4. RIFADINE [Suspect]
     Dosage: UNK
     Dates: start: 20130531, end: 20130605
  5. COVERSYL [Concomitant]
     Dosage: UNK
  6. NEBILOX [Concomitant]
     Dosage: UNK
  7. TOPALGIC [Concomitant]
     Dosage: UNK
  8. DAFALGAN [Concomitant]
     Dosage: UNK
  9. ENOXAPARIN [Concomitant]
     Dosage: UNK
     Dates: start: 20130527, end: 201306
  10. ZVLORIC [Concomitant]
     Dosage: UNK
     Dates: start: 20130528, end: 201306
  11. KARDEGIC [Concomitant]
  12. SPIRIVA [Concomitant]
     Dosage: UNK
  13. LASILIX [Concomitant]
     Dosage: UNK
  14. KALEORID [Concomitant]
     Dosage: UNK

REACTIONS (1)
  - Nephropathy toxic [Fatal]
